FAERS Safety Report 9824899 (Version 1)
Quarter: 2014Q1

REPORT INFORMATION
  Report Type: Spontaneous
  Country: FR (occurrence: FR)
  Receive Date: 20140117
  Receipt Date: 20140117
  Transmission Date: 20141002
  Serious: Yes (Hospitalization)
  Sender: FDA-Public Use
  Company Number: FR-ROCHE-1333449

PATIENT
  Age: 57 Year
  Sex: Male

DRUGS (3)
  1. VALIUM [Suspect]
     Indication: PRODUCT USED FOR UNKNOWN INDICATION
     Dosage: DOSAGE: 10MG
     Route: 048
     Dates: start: 20130511, end: 20130511
  2. IMOVANE [Suspect]
     Indication: PRODUCT USED FOR UNKNOWN INDICATION
     Dosage: DOSAGE: 7.5MG
     Route: 048
     Dates: start: 20130511, end: 20130511
  3. THERALENE (FRANCE) [Suspect]
     Indication: PRODUCT USED FOR UNKNOWN INDICATION
     Dosage: DOSAGE: 4 %
     Route: 048
     Dates: start: 20130511, end: 20130511

REACTIONS (2)
  - Altered state of consciousness [Recovered/Resolved]
  - Toxic encephalopathy [Recovered/Resolved]
